FAERS Safety Report 9789646 (Version 2)
Quarter: 2014Q1

REPORT INFORMATION
  Report Type: Report from Study
  Country: RU (occurrence: RU)
  Receive Date: 20131231
  Receipt Date: 20140117
  Transmission Date: 20141002
  Serious: No
  Sender: FDA-Public Use
  Company Number: RU-ROCHE-1325742

PATIENT
  Sex: 0

DRUGS (3)
  1. RITUXIMAB [Suspect]
     Indication: SYSTEMIC SCLEROSIS
     Route: 042
  2. RITUXIMAB [Suspect]
     Indication: SYSTEMIC SCLEROSIS
  3. MYCOPHENOLATE MOFETIL [Suspect]
     Indication: IMMUNOSUPPRESSION
     Route: 065

REACTIONS (2)
  - Deep vein thrombosis [Unknown]
  - Herpes zoster [Recovered/Resolved]
